FAERS Safety Report 10556979 (Version 1)
Quarter: 2014Q4

REPORT INFORMATION
  Report Type: Not Available
  Country: US (occurrence: US)
  Receive Date: 20141031
  Receipt Date: 20141031
  Transmission Date: 20150529
  Serious: No
  Sender: FDA-Public Use
  Company Number: US-LUPIN PHARMACEUTICALS INC.-E2B_00001557

PATIENT
  Age: 44 Year
  Sex: Male
  Weight: 113.05 kg

DRUGS (4)
  1. LISINOPRIL TABLETS USP 10 MG [Suspect]
     Active Substance: LISINOPRIL
     Indication: HYPERTENSION
     Dates: start: 20131104
  2. XANAX [Concomitant]
     Active Substance: ALPRAZOLAM
     Indication: PRODUCT USED FOR UNKNOWN INDICATION
  3. SEROQUEL [Concomitant]
     Active Substance: QUETIAPINE FUMARATE
     Indication: PRODUCT USED FOR UNKNOWN INDICATION
  4. LISINOPRIL TABLETS USP 10 MG [Suspect]
     Active Substance: LISINOPRIL
     Dates: start: 20131118, end: 20131201

REACTIONS (2)
  - Asthenia [Recovered/Resolved]
  - Fatigue [Recovered/Resolved]

NARRATIVE: CASE EVENT DATE: 20131104
